FAERS Safety Report 7704808-6 (Version None)
Quarter: 2011Q3

REPORT INFORMATION
  Report Type: 
  Country: None (occurrence: None)
  Receive Date: 20110823
  Receipt Date: 20110812
  Transmission Date: 20111222
  Serious: Yes (Death)
  Sender: FDA-Public Use
  Company Number: US-CELGENEUS-163-21880-11063472

PATIENT
  Sex: Male

DRUGS (2)
  1. DECADRON [Concomitant]
     Dosage: 20 MILLIGRAM
     Route: 048
     Dates: start: 20110601, end: 20110621
  2. REVLIMID [Suspect]
     Indication: MULTIPLE MYELOMA
     Dosage: 15 MILLIGRAM
     Route: 048
     Dates: start: 20110601, end: 20110621

REACTIONS (1)
  - GASTROINTESTINAL HAEMORRHAGE [None]
